FAERS Safety Report 5123400-3 (Version None)
Quarter: 2006Q4

REPORT INFORMATION
  Report Type: 
  Country: None (occurrence: None)
  Receive Date: 20061004
  Receipt Date: 20060926
  Transmission Date: 20070319
  Serious: Yes (Other)
  Sender: FDA-Public Use
  Company Number: FRWYE026226SEP06

PATIENT
  Age: 73 Year
  Sex: Male

DRUGS (4)
  1. EFFEXOR XR [Suspect]
     Dosage: 75 MG 1X PER 1 DAY ORAL
     Route: 048
     Dates: start: 20060902, end: 20060903
  2. AUGMENTIN [Suspect]
  3. MEDIATENSYL (URAPIDIL, , 0) [Suspect]
     Dosage: ORAL
     Route: 048
  4. PHYSIOTENS (MOXONIDINE, , 0) [Suspect]
     Dosage: ORAL
     Route: 048

REACTIONS (5)
  - COAGULATION FACTOR V LEVEL DECREASED [None]
  - CYTOLYTIC HEPATITIS [None]
  - HEPATIC ATROPHY [None]
  - JAUNDICE [None]
  - PROTHROMBIN TIME RATIO DECREASED [None]
